FAERS Safety Report 8585295-5 (Version None)
Quarter: 2012Q3

REPORT INFORMATION
  Report Type: 
  Country: None (occurrence: None)
  Receive Date: 20120810
  Receipt Date: 20120731
  Transmission Date: 20120928
  Serious: Yes (Hospitalization)
  Sender: FDA-Public Use
  Company Number: US-TEVA-350600USA

PATIENT
  Sex: Female

DRUGS (1)
  1. COPAXONE [Suspect]
     Indication: MULTIPLE SCLEROSIS
     Route: 058
     Dates: start: 20011001

REACTIONS (7)
  - INFLAMMATION [None]
  - BODY TEMPERATURE INCREASED [None]
  - SURGERY [None]
  - HIP SURGERY [None]
  - SICKLE CELL ANAEMIA WITH CRISIS [None]
  - ILEITIS [None]
  - BACTERIAL INFECTION [None]
